FAERS Safety Report 7585678-6 (Version None)
Quarter: 2011Q3

REPORT INFORMATION
  Report Type: 
  Country: None (occurrence: None)
  Receive Date: 20110701
  Receipt Date: 20110617
  Transmission Date: 20111222
  Serious: Yes (Hospitalization)
  Sender: FDA-Public Use
  Company Number: US-RANBAXY-2011US-45667

PATIENT
  Age: 49 Year
  Sex: Male

DRUGS (8)
  1. COTRIM [Suspect]
     Indication: OSTEOMYELITIS CHRONIC
     Dosage: UNK
     Route: 048
  2. RIFAMPICIN [Suspect]
     Indication: OSTEOMYELITIS CHRONIC
     Dosage: UNK
     Route: 065
  3. TELAVANCIN HYDROCHLORIDE [Suspect]
     Indication: OSTEOMYELITIS CHRONIC
     Dosage: 10 MG/KG/DAY
     Route: 042
  4. FUSIDIC ACID [Suspect]
     Indication: PRODUCT USED FOR UNKNOWN INDICATION
     Dosage: UNK
     Route: 065
  5. DAPTOMYCIN [Suspect]
     Indication: OSTEOMYELITIS CHRONIC
     Dosage: UNK , UNK
     Route: 065
  6. LINEZOLID [Suspect]
     Indication: ANTIBIOTIC PROPHYLAXIS
     Dosage: 600 MG, TWICE DAILY
     Route: 048
  7. DOXYCYCLINE HCL [Suspect]
     Indication: OSTEOMYELITIS CHRONIC
     Dosage: UNK
     Route: 065
  8. VANCOMYCIN [Suspect]
     Indication: OSTEOMYELITIS CHRONIC
     Dosage: UNK, UNK
     Route: 042

REACTIONS (9)
  - TOXICITY TO VARIOUS AGENTS [None]
  - NAUSEA [None]
  - VOMITING [None]
  - ANAEMIA [None]
  - PYREXIA [None]
  - DEAFNESS [None]
  - RENAL IMPAIRMENT [None]
  - TINNITUS [None]
  - DERMATITIS ALLERGIC [None]
